FAERS Safety Report 12573137 (Version 1)
Quarter: 2016Q3

REPORT INFORMATION
  Report Type: Spontaneous
  Country: US (occurrence: None)
  Receive Date: 20160719
  Receipt Date: 20160719
  Transmission Date: 20161109
  Serious: Yes (Disabling)
  Sender: FDA-Public Use
  Company Number: None

PATIENT
  Age: 65 Year
  Sex: Female
  Weight: 78.02 kg

DRUGS (5)
  1. CQ10 [Concomitant]
     Active Substance: UBIDECARENONE
  2. CRANBERRY PILLS [Concomitant]
  3. ATORVASTATIN 20MG MFR APOTEX, 20 MG [Suspect]
     Active Substance: ATORVASTATIN
     Indication: BLOOD CHOLESTEROL
     Dosage: 90 TABLET(S) AT BEDTIME TAKEN BY MOUTH
     Route: 048
     Dates: start: 20160229, end: 20160718
  4. VITAMIN E [Concomitant]
     Active Substance: .ALPHA.-TOCOPHEROL
  5. FISH OIL [Concomitant]
     Active Substance: FISH OIL

REACTIONS (5)
  - Seizure [None]
  - Dizziness [None]
  - Amnesia [None]
  - Headache [None]
  - Balance disorder [None]

NARRATIVE: CASE EVENT DATE: 20160501
